FAERS Safety Report 15196895 (Version 3)
Quarter: 2018Q4

REPORT INFORMATION
  Report Type: Spontaneous
  Country: FR (occurrence: FR)
  Receive Date: 20180725
  Receipt Date: 20181231
  Transmission Date: 20190204
  Serious: Yes (Life-Threatening, Other)
  Sender: FDA-Public Use
  Company Number: FR-PFIZER INC-2018297159

PATIENT
  Age: 61 Year
  Sex: Female

DRUGS (6)
  1. DOXORUBICIN HCL [Suspect]
     Active Substance: DOXORUBICIN HYDROCHLORIDE
     Indication: SOFT TISSUE SARCOMA
     Dosage: DAY 1 AND 2; DAY 21 AND 22
  2. CISPLATIN. [Suspect]
     Active Substance: CISPLATIN
     Indication: SOFT TISSUE SARCOMA
     Dosage: DAY 1 AND 2
  3. IFOSFAMIDE. [Suspect]
     Active Substance: IFOSFAMIDE
     Indication: SOFT TISSUE SARCOMA
     Dosage: 2.5 G/M2 , DAY 1 AND 2
  4. IFOSFAMIDE. [Suspect]
     Active Substance: IFOSFAMIDE
     Dosage: 2.5 G/M2, DAY 21 AND 22
  5. ETOPOSIDE. [Suspect]
     Active Substance: ETOPOSIDE
     Indication: SOFT TISSUE SARCOMA
     Dosage: DAY 1, 2 AND 3
  6. CISPLATIN. [Suspect]
     Active Substance: CISPLATIN
     Dosage: DAY 1, 2  AND 3

REACTIONS (2)
  - Anaemia [Unknown]
  - Neutropenia [Unknown]
